FAERS Safety Report 23876992 (Version 2)
Quarter: 2024Q3

REPORT INFORMATION
  Report Type: Spontaneous
  Country: CA (occurrence: CA)
  Receive Date: 20240521
  Receipt Date: 20240813
  Transmission Date: 20241016
  Serious: Yes (Other)
  Sender: INTERCEPT PHARMACEUTICALS
  Company Number: CA-ADVANZ PHARMA-202405004022

PATIENT
  Age: 55 Year
  Sex: Female

DRUGS (4)
  1. OCALIVA [Suspect]
     Active Substance: OBETICHOLIC ACID
     Indication: Primary biliary cholangitis
     Dosage: 5 MG, QD (OCALIVA)
     Route: 048
     Dates: start: 20230329
  2. OCALIVA [Suspect]
     Active Substance: OBETICHOLIC ACID
     Dosage: 5 MG, BID
     Route: 048
  3. OCALIVA [Suspect]
     Active Substance: OBETICHOLIC ACID
     Dosage: 10 MILLIGRAM, QD
     Route: 048
  4. URSODIOL [Concomitant]
     Active Substance: URSODIOL
     Dosage: 500 MG, BID

REACTIONS (1)
  - Diabetes mellitus [Unknown]
